FAERS Safety Report 5342654-1 (Version None)
Quarter: 2007Q2

REPORT INFORMATION
  Report Type: 
  Country: None (occurrence: None)
  Receive Date: 20070601
  Receipt Date: 20070523
  Transmission Date: 20071010
  Serious: Yes (Other)
  Sender: FDA-Public Use
  Company Number: FR-PFIZER INC-2007036996

PATIENT
  Sex: Male
  Weight: 77 kg

DRUGS (3)
  1. TAHOR [Suspect]
     Indication: HYPERCHOLESTEROLAEMIA
     Route: 048
     Dates: start: 20070115, end: 20070101
  2. AMLOR [Suspect]
     Indication: HYPERTENSION
     Route: 048
     Dates: start: 20070115, end: 20070221
  3. KARDEGIC [Concomitant]
     Dosage: DAILY DOSE:75MG
     Route: 048

REACTIONS (2)
  - PRURITUS [None]
  - TOXIC SKIN ERUPTION [None]
